FAERS Safety Report 5237925-3 (Version None)
Quarter: 2007Q1

REPORT INFORMATION
  Report Type: 
  Country: None (occurrence: None)
  Receive Date: 20070209
  Receipt Date: 20070129
  Transmission Date: 20070707
  Serious: No
  Sender: FDA-Public Use
  Company Number: RENA-12070

PATIENT
  Age: 64 Year
  Sex: Male

DRUGS (8)
  1. RENAGEL [Suspect]
     Indication: HYPERPHOSPHATAEMIA
     Dosage: 3 G DAILY PO
     Route: 048
     Dates: start: 20060201, end: 20061117
  2. ALLOZYM (ALLOPURINOL) [Concomitant]
  3. FUROSEMIDE [Concomitant]
  4. ASPIRIN [Concomitant]
  5. CALTAN (PRECIPITATED CALCIUM CARBONATE) [Concomitant]
  6. NICORANTA (NICORANDIL) [Concomitant]
  7. RISUMIC [Concomitant]
  8. SENNOSIDE A + B CALCIUM [Concomitant]

REACTIONS (2)
  - DRUG ERUPTION [None]
  - RASH GENERALISED [None]
